FAERS Safety Report 8868598 (Version 1)
Quarter: 2012Q4

REPORT INFORMATION
  Report Type: 
  Country: DE (occurrence: DE)
  Receive Date: 20121024
  Receipt Date: 20121024
  Transmission Date: 20130627
  Serious: Yes (Death, Hospitalization, Other)
  Sender: FDA-Public Use
  Company Number: DE-BAYER-2012-108057

PATIENT
  Age: 76 Year
  Sex: Female
  Weight: 73 kg

DRUGS (1)
  1. MOXIFLOXACIN IV [Suspect]
     Indication: LOBAR PNEUMONIA
     Route: 042

REACTIONS (5)
  - Sepsis pasteurella [Not Recovered/Not Resolved]
  - Septic shock [Not Recovered/Not Resolved]
  - Acute respiratory distress syndrome [Not Recovered/Not Resolved]
  - Renal failure acute [Not Recovered/Not Resolved]
  - Multi-organ failure [Fatal]
